FAERS Safety Report 8237986 (Version 2)
Quarter: 2013Q4

REPORT INFORMATION
  Report Type: Spontaneous
  Country: US (occurrence: US)
  Receive Date: 20111109
  Receipt Date: 20131203
  Transmission Date: 20140711
  Serious: Yes (Hospitalization)
  Sender: FDA-Public Use
  Company Number: US-GLAXOSMITHKLINE-A0915598A

PATIENT
  Age: 61 Year
  Sex: Male

DRUGS (1)
  1. AVANDIA [Suspect]
     Indication: DIABETES MELLITUS
     Route: 048
     Dates: start: 200003, end: 200404

REACTIONS (7)
  - Myocardial infarction [Not Recovered/Not Resolved]
  - Coronary artery bypass [Unknown]
  - Coronary artery disease [Unknown]
  - Stent placement [Unknown]
  - Weight increased [Unknown]
  - Dyspnoea [Unknown]
  - Amnesia [Unknown]
